FAERS Safety Report 4818868-3 (Version None)
Quarter: 2005Q4

REPORT INFORMATION
  Report Type: 
  Country: None (occurrence: None)
  Receive Date: 20051101
  Receipt Date: 20051018
  Transmission Date: 20060501
  Serious: Yes (Other)
  Sender: FDA-Public Use
  Company Number: URSO-2005-037

PATIENT
  Age: 75 Year
  Sex: Male

DRUGS (3)
  1. URSODIOL [Suspect]
     Indication: HEPATIC CIRRHOSIS
     Dosage: 300 MG
     Route: 048
     Dates: start: 20040827, end: 20050916
  2. VITA-E (TOCOPHEROL ACETATE) [Concomitant]
  3. HICEE (ASCORBIC ACID) [Concomitant]

REACTIONS (2)
  - ERYTHEMA MULTIFORME [None]
  - TOXIC SKIN ERUPTION [None]
